FAERS Safety Report 11270704 (Version 1)
Quarter: 2015Q3

REPORT INFORMATION
  Report Type: Report from Study
  Country: NL (occurrence: NL)
  Receive Date: 20150714
  Receipt Date: 20150714
  Transmission Date: 20151125
  Serious: Yes (Hospitalization)
  Sender: FDA-Public Use
  Company Number: NL-ROCHE-1606172

PATIENT
  Age: 59 Year
  Sex: Male
  Weight: 75.6 kg

DRUGS (13)
  1. PARACETAMOL [Concomitant]
     Active Substance: ACETAMINOPHEN
     Indication: PAIN
     Route: 065
     Dates: start: 20150608
  2. ULCOGANT [Concomitant]
     Active Substance: SUCRALFATE
     Route: 065
     Dates: start: 20150608
  3. CARBOPLATIN. [Suspect]
     Active Substance: CARBOPLATIN
     Indication: OESOPHAGEAL CARCINOMA
     Dosage: MOST RECENT DOSE BEFORE SAE 08/JUN/2015
     Route: 042
     Dates: start: 20150511
  4. PACLITAXEL. [Suspect]
     Active Substance: PACLITAXEL
     Indication: OESOPHAGEAL CARCINOMA
     Dosage: MOST RECENT DOSE BEFORE SAE 08/JUN/2015
     Route: 042
     Dates: start: 20150511
  5. TRASTUZUMAB [Suspect]
     Active Substance: TRASTUZUMAB
     Indication: OESOPHAGEAL CARCINOMA
     Dosage: LOADING DOSE
     Route: 042
     Dates: start: 20150511
  6. TRASTUZUMAB [Suspect]
     Active Substance: TRASTUZUMAB
     Dosage: MOST RECENT DOSE BEFORE SAE 08/JUN/2015, MAINTAINANCE DOSE
     Route: 042
  7. FENTANYL. [Concomitant]
     Active Substance: FENTANYL
     Route: 065
     Dates: start: 20150615
  8. PANTOPRAZOLE [Concomitant]
     Active Substance: PANTOPRAZOLE SODIUM
     Route: 065
     Dates: start: 20150614
  9. METOCLOPRAMIDE. [Concomitant]
     Active Substance: METOCLOPRAMIDE
     Route: 065
     Dates: start: 20150615
  10. PERTUZUMAB [Suspect]
     Active Substance: PERTUZUMAB
     Indication: OESOPHAGEAL CARCINOMA
     Dosage: MOST RECENT DOSE BEFORE SAE 08/JUN/2015
     Route: 042
     Dates: start: 20150511
  11. PERTUZUMAB [Suspect]
     Active Substance: PERTUZUMAB
     Dosage: MAINTAINANCE DOSE, MOST RECENT DOSE BEFORE SAE 08/JUN/2015
     Route: 042
  12. FENTANYL. [Concomitant]
     Active Substance: FENTANYL
     Indication: PAIN
     Route: 065
     Dates: start: 20150614
  13. OXYNORM [Concomitant]
     Active Substance: OXYCODONE HYDROCHLORIDE
     Indication: PAIN
     Route: 065
     Dates: start: 20150614, end: 20150615

REACTIONS (1)
  - Dehydration [Recovering/Resolving]

NARRATIVE: CASE EVENT DATE: 20150608
